FAERS Safety Report 17803964 (Version 19)
Quarter: 2020Q4

REPORT INFORMATION
  Report Type: Report from Study
  Country: PL (occurrence: PL)
  Receive Date: 20200519
  Receipt Date: 20201211
  Transmission Date: 20210113
  Serious: Yes (Hospitalization)
  Sender: FDA-Public Use
  Company Number: PL-EISAI MEDICAL RESEARCH-EC-2020-074793

PATIENT
  Age: 64 Year
  Sex: Female
  Weight: 84.5 kg

DRUGS (13)
  1. METFORMIN HYDROCHLORIDE. [Concomitant]
     Active Substance: METFORMIN HYDROCHLORIDE
     Dates: start: 20200318
  2. LENVATINIB [Suspect]
     Active Substance: LENVATINIB
     Indication: ENDOMETRIAL CANCER
     Dosage: STARTING DOSE AT 20 MG, FLUCTUATED DOSAGE
     Route: 048
     Dates: start: 20200115, end: 20200422
  3. PEMBROLIZUMAB. [Suspect]
     Active Substance: PEMBROLIZUMAB
     Route: 041
     Dates: start: 20200617
  4. TRAMADOL HYDROCHLORIDE. [Concomitant]
     Active Substance: TRAMADOL HYDROCHLORIDE
     Dates: start: 20200114
  5. LENVATINIB [Suspect]
     Active Substance: LENVATINIB
     Dosage: 14 MILLIGRAM, QD (IT WAS ALSO REPORTED AS DOSE REDUCED)
     Route: 048
     Dates: start: 20200520, end: 20200609
  6. AMILORIDE HYDROCHLORIDE;HYDROCHLOROTHIAZIDE [Concomitant]
     Dates: start: 20191215
  7. PEMBROLIZUMAB. [Suspect]
     Active Substance: PEMBROLIZUMAB
     Route: 041
     Dates: start: 20200422, end: 20200422
  8. LENVATINIB [Suspect]
     Active Substance: LENVATINIB
     Dosage: STARTING DOSE AT 10 MG, QD, FLUCTUATED DOSAGE; (IT WAS ALSO REPORTED AS DOSE REDUCED)
     Route: 048
     Dates: start: 20200617
  9. LENVATINIB [Suspect]
     Active Substance: LENVATINIB
     Route: 048
     Dates: start: 20200423, end: 20200512
  10. PEMBROLIZUMAB. [Suspect]
     Active Substance: PEMBROLIZUMAB
     Indication: ENDOMETRIAL CANCER
     Route: 041
     Dates: start: 20200115, end: 20200401
  11. ATORVASTATIN [Concomitant]
     Active Substance: ATORVASTATIN
     Dates: start: 20200318
  12. RAMIPRIL. [Concomitant]
     Active Substance: RAMIPRIL
     Dates: start: 20191215
  13. LEVOTHYROXINE SODIUM. [Concomitant]
     Active Substance: LEVOTHYROXINE SODIUM
     Dates: start: 20200217

REACTIONS (1)
  - Hepatotoxicity [Recovered/Resolved]

NARRATIVE: CASE EVENT DATE: 20200513
